FAERS Safety Report 9991918 (Version 1)
Quarter: 2014Q1

REPORT INFORMATION
  Report Type: Spontaneous
  Country: US (occurrence: US)
  Receive Date: 20140310
  Receipt Date: 20140310
  Transmission Date: 20141002
  Serious: No
  Sender: FDA-Public Use
  Company Number: US-VIIV HEALTHCARE LIMITED-A1057255A

PATIENT
  Sex: Female

DRUGS (1)
  1. TIVICAY [Suspect]
     Indication: PROPHYLAXIS
     Route: 048

REACTIONS (1)
  - Off label use [Unknown]
